FAERS Safety Report 4988035-1 (Version None)
Quarter: 2006Q2

REPORT INFORMATION
  Report Type: 
  Country: None (occurrence: None)
  Receive Date: 20060426
  Receipt Date: 20060414
  Transmission Date: 20061013
  Serious: Yes (Death, Other)
  Sender: FDA-Public Use
  Company Number: 2006041279

PATIENT
  Age: 40 Year
  Sex: Male
  Weight: 75 kg

DRUGS (8)
  1. LYRICA [Suspect]
     Indication: DIABETIC NEUROPATHY
     Dosage: 50 MG (25 MG, 2 IN 1 D), ORAL
     Route: 048
  2. TRAMADOL HCL [Concomitant]
  3. VARDENAFIL (VARDENAFIL) [Concomitant]
  4. TRAMADOL HCL [Concomitant]
  5. VARDENAFIL (VARDENAFIL) [Concomitant]
  6. ATORVASTATIN CALCIUM [Concomitant]
  7. ACTRAPID (INSULIN) [Concomitant]
  8. LANTUS [Concomitant]

REACTIONS (2)
  - MYOCARDIAL INFARCTION [None]
  - MYOCARDIAL ISCHAEMIA [None]
